FAERS Safety Report 21992977 (Version 1)
Quarter: 2023Q1

REPORT INFORMATION
  Report Type: Spontaneous
  Country: DZ (occurrence: DZ)
  Receive Date: 20230215
  Receipt Date: 20230215
  Transmission Date: 20230417
  Serious: Yes (Hospitalization, Other)
  Sender: FDA-Public Use
  Company Number: DZ-PFIZER INC-202300063286

PATIENT

DRUGS (1)
  1. IXIFI [Suspect]
     Active Substance: INFLIXIMAB-QBTX
     Dosage: UNK

REACTIONS (4)
  - Chest discomfort [Unknown]
  - Feeling hot [Unknown]
  - Respiration abnormal [Unknown]
  - Hypotension [Unknown]
